FAERS Safety Report 10056145 (Version 1)
Quarter: 2014Q2

REPORT INFORMATION
  Report Type: Spontaneous
  Country: US (occurrence: US)
  Receive Date: 20140403
  Receipt Date: 20140403
  Transmission Date: 20141212
  Serious: No
  Sender: FDA-Public Use
  Company Number: US-PFIZER INC-2014093236

PATIENT
  Age: 66 Year
  Sex: Female

DRUGS (1)
  1. NICOTROL INHALER [Suspect]
     Indication: SMOKING CESSATION THERAPY
     Dosage: SIX CARTRIDGES IN A DAY
     Dates: start: 20140313

REACTIONS (2)
  - Product taste abnormal [Unknown]
  - Cough [Unknown]
